FAERS Safety Report 9787802 (Version 1)
Quarter: 2013Q4

REPORT INFORMATION
  Report Type: Spontaneous
  Country: US (occurrence: US)
  Receive Date: 20131230
  Receipt Date: 20131230
  Transmission Date: 20140711
  Serious: No
  Sender: FDA-Public Use
  Company Number: US-PFIZER INC-2013368464

PATIENT
  Age: 60 Year
  Sex: Male

DRUGS (1)
  1. SUTENT [Suspect]
     Indication: PARATHYROID TUMOUR BENIGN
     Dosage: 50 MG, UNK
     Dates: start: 20130307

REACTIONS (3)
  - Disease progression [Unknown]
  - Parathyroid tumour benign [Unknown]
  - Off label use [Unknown]
